FAERS Safety Report 6266931-5 (Version None)
Quarter: 2009Q3

REPORT INFORMATION
  Report Type: 
  Country: None (occurrence: None)
  Receive Date: 20090714
  Receipt Date: 20090706
  Transmission Date: 20100115
  Serious: Yes (Hospitalization)
  Sender: FDA-Public Use
  Company Number: FI-ASTRAZENECA-2000AP02322

PATIENT
  Age: 26796 Day
  Sex: Male

DRUGS (9)
  1. ORCHIECTOMY [Suspect]
     Indication: PROSTATE CANCER
     Dates: start: 20000404, end: 20000404
  2. ANDROCUR [Suspect]
     Indication: PROSTATE CANCER
     Route: 048
     Dates: start: 19990923, end: 19991017
  3. ZOLADEX [Suspect]
     Indication: PROSTATE CANCER
     Route: 058
     Dates: start: 19990923
  4. THYROXIN [Concomitant]
     Indication: HYPOTHYROIDISM
     Route: 048
     Dates: start: 19850101
  5. RETAFYLLIN [Concomitant]
     Indication: ASTHMA
     Route: 048
     Dates: start: 19900101
  6. SALBUVENT [Concomitant]
     Indication: ASTHMA
     Route: 055
     Dates: start: 19900101
  7. CORTIVENT [Concomitant]
     Indication: ASTHMA
     Route: 065
     Dates: start: 19900101
  8. OXIS [Concomitant]
     Indication: ASTHMA
     Route: 065
     Dates: start: 19970101
  9. BLOCANOL [Concomitant]
     Indication: GLAUCOMA
     Route: 065
     Dates: start: 19800101

REACTIONS (1)
  - SCROTAL HAEMATOMA [None]
